FAERS Safety Report 6559166-X (Version None)
Quarter: 2010Q1

REPORT INFORMATION
  Report Type: 
  Country: None (occurrence: None)
  Receive Date: 20100129
  Receipt Date: 20100127
  Transmission Date: 20100710
  Serious: Yes (Hospitalization)
  Sender: FDA-Public Use
  Company Number: GB-MERCK-0908GBR00054

PATIENT
  Sex: Male

DRUGS (2)
  1. ISENTRESS [Suspect]
     Indication: HIV INFECTION
     Route: 048
     Dates: end: 20090818
  2. TRUVADA [Suspect]
     Route: 065

REACTIONS (3)
  - ANAEMIA [None]
  - CREATININE RENAL CLEARANCE [None]
  - RENAL IMPAIRMENT [None]
